FAERS Safety Report 9040358 (Version 1)
Quarter: 2013Q1

REPORT INFORMATION
  Report Type: Report from Study
  Country: US (occurrence: US)
  Receive Date: 20130129
  Receipt Date: 20130129
  Transmission Date: 20140127
  Serious: No
  Sender: FDA-Public Use
  Company Number: US-ABBOTT-12P-163-0889830-00

PATIENT
  Age: 19 Year
  Sex: 0
  Weight: 51.3 kg

DRUGS (13)
  1. HUMIRA 40 MG/0.8 ML PEN [Suspect]
     Indication: CROHN^S DISEASE
     Dosage: LOADING DOSE
     Dates: start: 20111229, end: 20111229
  2. HUMIRA 40 MG/0.8 ML PEN [Suspect]
  3. UNKNOWN OPIATES [Concomitant]
     Indication: PAIN
     Dates: start: 201112
  4. ZOFRAN [Concomitant]
     Indication: NAUSEA
     Dates: start: 201112
  5. PEPCID [Concomitant]
     Indication: PRODUCT USED FOR UNKNOWN INDICATION
     Dates: start: 201112
  6. 6-MP [Concomitant]
     Indication: CROHN^S DISEASE
     Dates: start: 201112
  7. PHENERGAN [Concomitant]
     Indication: NAUSEA
     Dates: start: 201112
  8. ATIVAN [Concomitant]
     Indication: PRODUCT USED FOR UNKNOWN INDICATION
     Dates: start: 201112
  9. PREDNISONE [Concomitant]
     Indication: CROHN^S DISEASE
     Dates: start: 201112
  10. LOMOTIL [Concomitant]
     Indication: CROHN^S DISEASE
     Dates: start: 201112
  11. OXYCONTIN [Concomitant]
     Indication: PRODUCT USED FOR UNKNOWN INDICATION
     Dates: start: 201112
  12. PERCOCET [Concomitant]
     Indication: PRODUCT USED FOR UNKNOWN INDICATION
     Dates: start: 201112
  13. COLESTIPOL HYDROCHLORIDE [Concomitant]
     Indication: CROHN^S DISEASE
     Dates: start: 201112

REACTIONS (1)
  - Headache [Not Recovered/Not Resolved]
